FAERS Safety Report 9342433 (Version 1)
Quarter: 2013Q2

REPORT INFORMATION
  Report Type: Spontaneous
  Country: AU (occurrence: None)
  Receive Date: 20130607
  Receipt Date: 20130607
  Transmission Date: 20140414
  Serious: Yes (Death)
  Sender: FDA-Public Use
  Company Number: IPC201305-000215

PATIENT
  Sex: Male

DRUGS (2)
  1. ALLOPURINOL [Suspect]
  2. FEBUXOSTAT [Suspect]

REACTIONS (1)
  - Hepatic failure [None]
